FAERS Safety Report 8825283 (Version 1)
Quarter: 2012Q4

REPORT INFORMATION
  Report Type: 
  Country: GB (occurrence: GB)
  Receive Date: 20121004
  Receipt Date: 20121004
  Transmission Date: 20130627
  Serious: Yes (Disabling)
  Sender: FDA-Public Use
  Company Number: GB-WATSON-2012-16630

PATIENT
  Age: 15 Year
  Sex: Female
  Weight: 61 kg

DRUGS (2)
  1. LAMOTRIGINE (UNKNOWN) [Suspect]
     Indication: PETIT MAL EPILEPSY
     Dosage: UNK
     Route: 048
     Dates: start: 201106, end: 201203
  2. LEVETIRACETAM [Concomitant]
     Indication: PRODUCT USED FOR UNKNOWN INDICATION
     Dosage: UNK
     Route: 065

REACTIONS (1)
  - Memory impairment [Recovering/Resolving]
